FAERS Safety Report 4281055-4 (Version None)
Quarter: 2004Q1

REPORT INFORMATION
  Report Type: 
  Country: None (occurrence: None)
  Receive Date: 20040128
  Receipt Date: 20040128
  Transmission Date: 20041129
  Serious: No
  Sender: FDA-Public Use
  Company Number: None

PATIENT
  Sex: Female
  Weight: 78.0187 kg

DRUGS (3)
  1. CISPLATIN [Suspect]
     Indication: CARCINOMA
     Dosage: IV TOTAL 277 MG
     Route: 042
     Dates: start: 20021120, end: 20021220
  2. CISPLATIN [Suspect]
     Indication: NECK MASS
     Dosage: IV TOTAL 277 MG
     Route: 042
     Dates: start: 20021120, end: 20021220
  3. RADIATION THERAPY [Concomitant]

REACTIONS (1)
  - HYPOMAGNESAEMIA [None]
